FAERS Safety Report 7150363-1 (Version None)
Quarter: 2010Q4

REPORT INFORMATION
  Report Type: 
  Country: None (occurrence: None)
  Receive Date: 20101207
  Receipt Date: 20101207
  Transmission Date: 20110411
  Serious: Yes (Hospitalization)
  Sender: FDA-Public Use
  Company Number: None

PATIENT
  Sex: Male

DRUGS (3)
  1. COUMADIN [Suspect]
     Dosage: 5MG TU/TH/SAT/SUN PO; 2.5MG M/W/F PO
     Route: 048
     Dates: start: 19780101
  2. NEXIUM [Concomitant]
  3. HYDROCHLOROTHIAZIDE [Concomitant]

REACTIONS (2)
  - GROIN PAIN [None]
  - MUSCLE HAEMORRHAGE [None]
